FAERS Safety Report 6183275-0 (Version None)
Quarter: 2009Q2

REPORT INFORMATION
  Report Type: 
  Country: None (occurrence: None)
  Receive Date: 20090507
  Receipt Date: 20090430
  Transmission Date: 20091009
  Serious: Yes (Other)
  Sender: FDA-Public Use
  Company Number: US-GENENTECH-282312

PATIENT
  Sex: Female

DRUGS (8)
  1. BEVACIZUMAB [Suspect]
     Indication: METASTASES TO LIVER
     Dosage: UNK
     Dates: start: 20080827
  2. BEVACIZUMAB [Suspect]
     Indication: COLORECTAL CANCER
  3. LEUCOVORIN CALCIUM [Suspect]
     Indication: METASTASES TO LIVER
     Dosage: UNK
     Dates: start: 20080827
  4. LEUCOVORIN CALCIUM [Suspect]
     Indication: COLORECTAL CANCER
  5. FLUOROURACIL [Suspect]
     Indication: METASTASES TO LIVER
     Dosage: UNK
     Dates: start: 20080827
  6. FLUOROURACIL [Suspect]
     Indication: COLORECTAL CANCER
  7. IRINOTECAN HCL [Suspect]
     Indication: METASTASES TO LIVER
     Dosage: UNK
     Dates: start: 20080827
  8. IRINOTECAN HCL [Suspect]
     Indication: COLORECTAL CANCER

REACTIONS (1)
  - BILE DUCT OBSTRUCTION [None]
